FAERS Safety Report 8917961 (Version 1)
Quarter: 2012Q4

REPORT INFORMATION
  Report Type: 
  Country: US (occurrence: US)
  Receive Date: 20121120
  Receipt Date: 20121120
  Transmission Date: 20130627
  Serious: No
  Sender: FDA-Public Use
  Company Number: US-ASTRAZENECA-2012SE16272

PATIENT
  Age: 58 Year
  Sex: Male
  Weight: 85.3 kg

DRUGS (3)
  1. NEXIUM [Suspect]
     Route: 048
  2. NEXIUM [Suspect]
     Route: 048
  3. KEFLEX [Concomitant]
     Indication: INFLUENZA

REACTIONS (4)
  - Chest pain [Unknown]
  - Sudden onset of sleep [Unknown]
  - Dizziness [Unknown]
  - Drug prescribing error [Unknown]
